FAERS Safety Report 7225808-9 (Version None)
Quarter: 2011Q1

REPORT INFORMATION
  Report Type: 
  Country: None (occurrence: None)
  Receive Date: 20110113
  Receipt Date: 20110110
  Transmission Date: 20110831
  Serious: Yes (Death)
  Sender: FDA-Public Use
  Company Number: US-PFIZER INC-2011006002

PATIENT
  Sex: Male
  Weight: 96.7 kg

DRUGS (3)
  1. PGDFRA [Suspect]
     Indication: SARCOMA
     Dosage: 1500 MG, UNK
     Dates: start: 20101228
  2. DOXORUBICIN HCL [Suspect]
     Indication: SARCOMA
     Dosage: 160 MG, UNK
     Dates: start: 20101221
  3. COUMADIN [Concomitant]
     Dosage: UNK
     Dates: end: 20101221

REACTIONS (1)
  - DEATH [None]
